FAERS Safety Report 12855197 (Version 1)
Quarter: 2016Q4

REPORT INFORMATION
  Report Type: Spontaneous
  Country: FR (occurrence: FR)
  Receive Date: 20161017
  Receipt Date: 20161017
  Transmission Date: 20170207
  Serious: Yes (Other)
  Sender: FDA-Public Use
  Company Number: FR-MYLANLABS-2016M1044369

PATIENT

DRUGS (1)
  1. METHOTREXATE. [Suspect]
     Active Substance: METHOTREXATE
     Indication: ECTOPIC PREGNANCY
     Dosage: 2 DF, TOTAL (2 INJECTIONS, DOSAGE: 48 MG/INJECTION)
     Route: 030

REACTIONS (5)
  - Abortion induced [Recovered/Resolved]
  - Oligohydramnios [Recovered/Resolved]
  - Premature rupture of membranes [Recovered/Resolved]
  - Maternal exposure before pregnancy [Recovered/Resolved]
  - Product use issue [Unknown]
